FAERS Safety Report 20584567 (Version 1)
Quarter: 2022Q1

REPORT INFORMATION
  Report Type: Other
  Country: US (occurrence: None)
  Receive Date: 20220311
  Receipt Date: 20220311
  Transmission Date: 20220424
  Serious: Yes (Hospitalization)
  Sender: FDA-Public Use
  Company Number: US-ROCHE-3040145

PATIENT
  Sex: Female
  Weight: 64.014 kg

DRUGS (1)
  1. OCREVUS [Suspect]
     Active Substance: OCRELIZUMAB
     Indication: Relapsing multiple sclerosis
     Dosage: ONGOING-YES
     Route: 042
     Dates: start: 202110

REACTIONS (2)
  - Pneumonia [Unknown]
  - COVID-19 [Unknown]
